FAERS Safety Report 5416399-3 (Version None)
Quarter: 2007Q3

REPORT INFORMATION
  Report Type: 
  Country: None (occurrence: None)
  Receive Date: 20070814
  Receipt Date: 20070802
  Transmission Date: 20080115
  Serious: Yes (Hospitalization)
  Sender: FDA-Public Use
  Company Number: 1-15186028/MED-07162

PATIENT
  Age: 63 Year
  Sex: Male

DRUGS (2)
  1. GABAPENTIN [Suspect]
     Indication: BACK PAIN
     Dosage: 4900MG DAILY, ORAL
     Route: 048
  2. OXYCODONE HCL [Concomitant]

REACTIONS (7)
  - AGITATION [None]
  - CONFUSIONAL STATE [None]
  - FATIGUE [None]
  - HALLUCINATION [None]
  - SEDATION [None]
  - TACHYCARDIA [None]
  - TREMOR [None]
